FAERS Safety Report 9378696 (Version 3)
Quarter: 2013Q3

REPORT INFORMATION
  Report Type: Spontaneous
  Country: US (occurrence: US)
  Receive Date: 20130702
  Receipt Date: 20130809
  Transmission Date: 20140515
  Serious: Yes (Hospitalization)
  Sender: FDA-Public Use
  Company Number: US-BIOGENIDEC-2013BI058764

PATIENT
  Age: 58 Year
  Sex: Male

DRUGS (2)
  1. AVONEX [Suspect]
     Indication: MULTIPLE SCLEROSIS
     Route: 030
     Dates: start: 200510
  2. PENICILLIN [Concomitant]

REACTIONS (6)
  - Prostatic specific antigen increased [Recovered/Resolved]
  - Urinary incontinence [Unknown]
  - Mouth cyst [Recovered/Resolved]
  - Drug eruption [Recovered/Resolved]
  - Memory impairment [Unknown]
  - Injection site pain [Recovered/Resolved]
